FAERS Safety Report 4778542-9 (Version None)
Quarter: 2005Q3

REPORT INFORMATION
  Report Type: 
  Country: None (occurrence: None)
  Receive Date: 20050926
  Receipt Date: 20050815
  Transmission Date: 20060218
  Serious: No
  Sender: FDA-Public Use
  Company Number: US-BRISTOL-MYERS SQUIBB COMPANY-13104187

PATIENT
  Age: 38 Year
  Sex: Female

DRUGS (6)
  1. REYATAZ [Suspect]
     Indication: HIV TEST POSITIVE
  2. VIDEX [Concomitant]
  3. LOPID [Concomitant]
  4. GLIPIZIDE [Concomitant]
  5. VIREAD [Concomitant]
  6. NORVIR [Concomitant]

REACTIONS (1)
  - NEPHROLITHIASIS [None]
